FAERS Safety Report 12233722 (Version 1)
Quarter: 2016Q2

REPORT INFORMATION
  Report Type: Spontaneous
  Country: US (occurrence: None)
  Receive Date: 20160401
  Receipt Date: 20160401
  Transmission Date: 20160815
  Serious: No
  Sender: FDA-Public Use
  Company Number: None

PATIENT
  Age: 69 Year
  Sex: Female

DRUGS (1)
  1. PROLIA [Suspect]
     Active Substance: DENOSUMAB
     Indication: OSTEOPOROSIS
     Dosage: 60 MG Q 6 MONTHS SQ
     Route: 058
     Dates: start: 20140926

REACTIONS (2)
  - Ear pain [None]
  - Neck pain [None]

NARRATIVE: CASE EVENT DATE: 201508
